FAERS Safety Report 20865433 (Version 1)
Quarter: 2022Q2

REPORT INFORMATION
  Report Type: Spontaneous
  Country: BR (occurrence: BR)
  Receive Date: 20220524
  Receipt Date: 20220524
  Transmission Date: 20220721
  Serious: Yes (Other)
  Sender: FDA-Public Use
  Company Number: BR-JNJFOC-20220539653

PATIENT
  Sex: Female
  Weight: 89 kg

DRUGS (3)
  1. SIMPONI [Suspect]
     Active Substance: GOLIMUMAB
     Indication: Ankylosing spondylitis
     Route: 058
  2. AZULFIDINE [Concomitant]
     Active Substance: SULFASALAZINE
  3. PREGABALIN [Concomitant]
     Active Substance: PREGABALIN

REACTIONS (3)
  - Dementia Alzheimer^s type [Unknown]
  - Ankylosing spondylitis [Unknown]
  - Product dose omission issue [Unknown]
